FAERS Safety Report 11062123 (Version 1)
Quarter: 2015Q2

REPORT INFORMATION
  Report Type: Spontaneous
  Country: PT (occurrence: PT)
  Receive Date: 20150424
  Receipt Date: 20150424
  Transmission Date: 20150821
  Serious: Yes (Other)
  Sender: FDA-Public Use
  Company Number: PT-ABBVIE-15P-130-1380913-00

PATIENT
  Age: 8 Year
  Sex: Male
  Weight: 28 kg

DRUGS (4)
  1. CEBIOLON [Concomitant]
     Active Substance: ASCORBIC ACID
     Indication: VITAMIN SUPPLEMENTATION
     Route: 048
     Dates: start: 201503
  2. BRUFEN [Concomitant]
     Active Substance: IBUPROFEN
     Indication: ODYNOPHAGIA
     Route: 048
     Dates: start: 20150404, end: 20150404
  3. FERRUM HAUSMANN [Concomitant]
     Active Substance: FERROUS FUMARATE
     Indication: PROPHYLAXIS
     Route: 048
     Dates: start: 201503
  4. KLACID PEDIATRICO [Suspect]
     Active Substance: CLARITHROMYCIN
     Indication: TOOTHACHE
     Route: 048
     Dates: start: 20150405, end: 20150407

REACTIONS (9)
  - Decreased appetite [Recovered/Resolved]
  - Hypoaesthesia [Recovered/Resolved]
  - Pruritus generalised [Recovered/Resolved]
  - Flatulence [Recovered/Resolved]
  - Nightmare [Recovered/Resolved]
  - Diarrhoea [Recovered/Resolved]
  - Insomnia [Recovered/Resolved]
  - Generalised erythema [Recovered/Resolved]
  - Pain in extremity [Recovered/Resolved]

NARRATIVE: CASE EVENT DATE: 20150405
